FAERS Safety Report 8429584 (Version 2)
Quarter: 2012Q4

REPORT INFORMATION
  Report Type: 
  Country: ES (occurrence: ES)
  Receive Date: 20120227
  Receipt Date: 20121016
  Transmission Date: 20130627
  Serious: Yes (Other)
  Sender: FDA-Public Use
  Company Number: ES-ABBOTT-11P-144-0886750-00

PATIENT
  Age: 39 Year
  Sex: Male
  Weight: 110 kg

DRUGS (2)
  1. HUMIRA 40 MG/ 0.8 ML PRE-FILLED SYRINGE [Suspect]
     Indication: PSORIASIS
     Route: 058
     Dates: start: 201105
  2. STELARA [Suspect]
     Indication: PSORIASIS
     Route: 058
     Dates: start: 201009, end: 201105

REACTIONS (1)
  - Erectile dysfunction [Recovered/Resolved]
